FAERS Safety Report 7015267-3 (Version None)
Quarter: 2010Q3

REPORT INFORMATION
  Report Type: 
  Country: None (occurrence: None)
  Receive Date: 20100927
  Receipt Date: 20100922
  Transmission Date: 20110219
  Serious: Yes (Other)
  Sender: FDA-Public Use
  Company Number: GB-AMGEN-QUU440585

PATIENT
  Sex: Female

DRUGS (5)
  1. ENBREL [Suspect]
     Indication: RHEUMATOID ARTHRITIS
     Dosage: 50 MG, FREQUENCY UNKNOWN
     Route: 058
     Dates: start: 20000101, end: 20100910
  2. LEVOTHYROXINE SODIUM [Concomitant]
     Dosage: UNKNOWN
     Route: 048
  3. ACETAMINOPHEN [Concomitant]
     Dosage: UNKNOWN
     Route: 048
  4. ASPIRIN [Concomitant]
     Dosage: UNKNOWN
     Route: 048
  5. BENDROFLUMETHIAZIDE [Concomitant]
     Dosage: 2.5 MG, FREQUENCY UNKNOWN
     Route: 048

REACTIONS (1)
  - ULCERATIVE KERATITIS [None]
